FAERS Safety Report 10197012 (Version 1)
Quarter: 2014Q2

REPORT INFORMATION
  Report Type: Spontaneous
  Country: US (occurrence: US)
  Receive Date: 20140527
  Receipt Date: 20140527
  Transmission Date: 20141212
  Serious: No
  Sender: FDA-Public Use
  Company Number: US-TEVA-483813USA

PATIENT
  Sex: Female

DRUGS (3)
  1. PARAGARD 380A [Suspect]
     Indication: CONTRACEPTION
     Route: 015
     Dates: start: 20140514, end: 20140514
  2. PARAGARD 380A [Suspect]
     Route: 015
     Dates: start: 20140514, end: 20140514
  3. PARAGARD 380A [Suspect]
     Route: 015
     Dates: start: 20140514, end: 20140514

REACTIONS (2)
  - Pain [Unknown]
  - Complication of device insertion [Recovered/Resolved]
